FAERS Safety Report 7601610-0 (Version None)
Quarter: 2011Q2

REPORT INFORMATION
  Report Type: 
  Country: None (occurrence: None)
  Receive Date: 20110629
  Receipt Date: 20100618
  Transmission Date: 20111010
  Serious: Yes (Other)
  Sender: FDA-Public Use
  Company Number: 710955

PATIENT
  Age: 52 Year
  Sex: Male
  Weight: 111.1 kg

DRUGS (4)
  1. LAMICTAL [Concomitant]
  2. TOPAMAX [Concomitant]
  3. CLONAZEPAM [Suspect]
     Indication: CONVULSION
     Dosage: 1 MG, 3 PER 1 DAY, ORAL
     Route: 048
     Dates: start: 20091201
  4. LEXAPRO [Concomitant]

REACTIONS (4)
  - CONVULSION [None]
  - NO THERAPEUTIC RESPONSE [None]
  - DRUG TOLERANCE [None]
  - ANXIETY [None]
